FAERS Safety Report 5502974-4 (Version None)
Quarter: 2007Q4

REPORT INFORMATION
  Report Type: 
  Country: None (occurrence: None)
  Receive Date: 20071031
  Receipt Date: 20071016
  Transmission Date: 20080405
  Serious: Yes (Hospitalization)
  Sender: FDA-Public Use
  Company Number: US-ELI_LILLY_AND_COMPANY-US200710004409

PATIENT
  Sex: Male
  Weight: 41.6 kg

DRUGS (4)
  1. SOMATROPIN [Suspect]
     Dosage: UNK MG, DAILY (1/D)
     Dates: start: 20041024
  2. SOMATROPIN [Suspect]
     Dosage: 2.8 MG, DAILY (1/D)
     Route: 058
     Dates: start: 20060323
  3. LUPRON [Concomitant]
     Dates: start: 20050308, end: 20070730
  4. LEVOXYL [Concomitant]
     Indication: HYPOTHYROIDISM
     Dates: start: 20030825

REACTIONS (1)
  - OSTEOMA [None]
